FAERS Safety Report 5638120-6 (Version None)
Quarter: 2008Q1

REPORT INFORMATION
  Report Type: 
  Country: None (occurrence: None)
  Receive Date: 20080221
  Receipt Date: 20070913
  Transmission Date: 20080703
  Serious: Yes (Other)
  Sender: FDA-Public Use
  Company Number: CFX20070005

PATIENT
  Age: 49 Year
  Sex: Male

DRUGS (1)
  1. CIPROFLOXACIN [Suspect]
     Indication: PROSTATE INFECTION
     Dosage: 1 TAB BID PO
     Route: 048

REACTIONS (3)
  - LABORATORY TEST ABNORMAL [None]
  - SARCOIDOSIS [None]
  - SWELLING FACE [None]
